FAERS Safety Report 4868639-7 (Version None)
Quarter: 2005Q4

REPORT INFORMATION
  Report Type: 
  Country: None (occurrence: None)
  Receive Date: 20051223
  Receipt Date: 20051214
  Transmission Date: 20060501
  Serious: Yes (Hospitalization)
  Sender: FDA-Public Use
  Company Number: 220376

PATIENT
  Age: 74 Year
  Sex: Male

DRUGS (7)
  1. AVASTIN [Suspect]
     Indication: COLORECTAL CANCER METASTATIC
     Dates: start: 20050301
  2. FLUOROURACIL [Concomitant]
  3. LEUCOVORIN CALCIUM [Concomitant]
  4. OXALIPLATIN (OXALIPLATIN) [Concomitant]
  5. LASIX [Concomitant]
  6. PERCOCET [Concomitant]
  7. ELMIRON [Concomitant]

REACTIONS (7)
  - ABASIA [None]
  - EFFUSION [None]
  - LIMB DISCOMFORT [None]
  - MUSCLE SWELLING [None]
  - OEDEMA PERIPHERAL [None]
  - PAIN IN EXTREMITY [None]
  - SPINAL COLUMN STENOSIS [None]
